FAERS Safety Report 15406078 (Version 4)
Quarter: 2019Q3

REPORT INFORMATION
  Report Type: Spontaneous
  Country: US (occurrence: US)
  Receive Date: 20180920
  Receipt Date: 20190702
  Transmission Date: 20191004
  Serious: No
  Sender: FDA-Public Use
  Company Number: US-PFIZER INC-2018381485

PATIENT
  Age: 71 Year
  Sex: Female
  Weight: 87.98 kg

DRUGS (18)
  1. TRAVATAN [Concomitant]
     Active Substance: TRAVOPROST
     Indication: GLAUCOMA
     Dosage: 2 GTT, 1X/DAY [1 DROP IN EACH EYE EVERY NIGHT]
     Dates: start: 2007
  2. OMEPRAZOLE. [Concomitant]
     Active Substance: OMEPRAZOLE
     Dosage: 40 MG, UNK (ONCE)
  3. NOVOLOG [Concomitant]
     Active Substance: INSULIN ASPART
     Indication: DIABETES MELLITUS
     Dosage: UNK, [ IF OVER 170 DURING THE DAY, ADMINISTER 5-10 UNITS SUBCUTANEOUSLY. ], (3 TIME DAY (15 UNIT)
     Route: 058
     Dates: start: 2017
  4. VITAMIN D3 [Concomitant]
     Active Substance: CHOLECALCIFEROL
     Dosage: UNK (ONCE 2000)
  5. ASPIRIN 81 [Concomitant]
     Active Substance: ASPIRIN
     Dosage: UNK (ONCE)
  6. HYDROCODONE [Concomitant]
     Active Substance: HYDROCODONE
     Indication: ARTHRITIS
     Dosage: 1 DF, 3X/DAY [1 TABLET BY MOUTH THREE TIMES A DAILY]
     Route: 048
     Dates: start: 2016
  7. LYRICA [Suspect]
     Active Substance: PREGABALIN
     Dosage: 150 MG, 2X/DAY (180 FOR 90 DAYS)
     Route: 048
  8. METFORMIN [Concomitant]
     Active Substance: METFORMIN HYDROCHLORIDE
     Indication: DIABETES MELLITUS
     Dosage: 1 DF, 2X/DAY
     Route: 048
     Dates: start: 2000
  9. METFORMIN [Concomitant]
     Active Substance: METFORMIN HYDROCHLORIDE
     Dosage: 1000 MG, 2X/DAY
  10. COMBIGAN [Concomitant]
     Active Substance: BRIMONIDINE TARTRATE\TIMOLOL MALEATE
     Indication: GLAUCOMA
     Dosage: 4 GTT, 2X/DAY [DOSAGE: 0.2-0.5%: 1 DROP IN EACH EYE IN THE MORNING AND 1 DROP IN EACH EYE AT NIGHT]
     Dates: start: 2015
  11. CENTRUM SILVER [ASCORBIC ACID;BETACAROTENE;BIOTIN;CALCIUM;CHROMIUM;COL [Concomitant]
     Dosage: UNK (ONCE)
  12. LANTUS [Concomitant]
     Active Substance: INSULIN GLARGINE
     Indication: DIABETES MELLITUS
     Dosage: UNK UNK, 1X/DAY [ADMINISTERS 45 UNITS AT NIGHT SUBCUTANEOUSLY]
     Route: 058
     Dates: start: 2007
  13. AZOPT [Concomitant]
     Active Substance: BRINZOLAMIDE
     Indication: GLAUCOMA
     Dosage: 4 GTT, 2X/DAY [1 DROP IN EACH EYE IN THE MORNING, 1 DROP IN EACH EYE AT NIGHT. ]
     Dates: start: 2017
  14. ATORVASTATIN [Concomitant]
     Active Substance: ATORVASTATIN
     Dosage: 10 MG, UNK (ONCE)
  15. VITAMIN B12 [Concomitant]
     Active Substance: CYANOCOBALAMIN
     Dosage: UNK (ONCE 2500)
  16. LYRICA [Suspect]
     Active Substance: PREGABALIN
     Dosage: 150 MG, 2X/DAY (ONE IN THE MORNING AND ONE IN THE AFTERNOON)
     Route: 048
  17. AMLODIPINE BESILATE [Concomitant]
     Active Substance: AMLODIPINE BESYLATE
     Indication: BLOOD PRESSURE ABNORMAL
     Dosage: 10 MG, 1X/DAY
     Route: 048
     Dates: start: 2009
  18. VITAMIN E [Concomitant]
     Active Substance: .ALPHA.-TOCOPHEROL
     Dosage: UNK (ONCE 400)

REACTIONS (3)
  - Pain [Recovered/Resolved]
  - Eating disorder [Recovered/Resolved]
  - Weight decreased [Recovered/Resolved]
